FAERS Safety Report 6399682-7 (Version None)
Quarter: 2009Q4

REPORT INFORMATION
  Report Type: 
  Country: None (occurrence: None)
  Receive Date: 20091014
  Receipt Date: 20091012
  Transmission Date: 20100525
  Serious: Yes (Death)
  Sender: FDA-Public Use
  Company Number: DK-AVENTIS-200920926GDDC

PATIENT
  Age: 62 Year
  Sex: Male
  Weight: 79.2 kg

DRUGS (10)
  1. AFLIBERCEPT [Suspect]
     Route: 042
     Dates: start: 20090826, end: 20090826
  2. DOCETAXEL [Suspect]
     Route: 042
     Dates: start: 20090826, end: 20090826
  3. PREDNISOLONE [Suspect]
     Route: 048
     Dates: start: 20090826, end: 20090826
  4. ZOLADEX [Concomitant]
     Dosage: DOSE: UNK
     Dates: start: 20080808
  5. CENTYL [Concomitant]
     Dosage: DOSE: UNK
     Dates: start: 19970101
  6. SIMVASTATIN [Concomitant]
     Dosage: DOSE: UNK
     Dates: start: 20000101
  7. AMLODIPINE [Concomitant]
     Dosage: DOSE: UNK
     Dates: start: 19970101
  8. HJERDYL [Concomitant]
     Dosage: DOSE: UNK
     Dates: start: 20000101
  9. CAVIT D [Concomitant]
     Dosage: DOSE: UNK
     Dates: start: 20070824
  10. LAXOBERAL [Concomitant]
     Dosage: DOSE: UNK
     Dates: start: 20090721

REACTIONS (1)
  - SUDDEN DEATH [None]
